FAERS Safety Report 5449282-8 (Version None)
Quarter: 2007Q3

REPORT INFORMATION
  Report Type: 
  Country: None (occurrence: None)
  Receive Date: 20070907
  Receipt Date: 20070905
  Transmission Date: 20080115
  Serious: Yes (Death, Hospitalization)
  Sender: FDA-Public Use
  Company Number: 510-5-2005-31057

PATIENT
  Sex: Male
  Weight: 79 kg

DRUGS (5)
  1. LIDOCAINE [Suspect]
     Indication: POST HERPETIC NEURALGIA
     Dosage: 2 PATCHES A DAY
     Dates: start: 20030926, end: 20050711
  2. PLACEBO PATCH (11/19/03 ~ 11/26/03) [Concomitant]
  3. GABAPENTIN (2/27/04 ~ ) [Concomitant]
  4. ATENOLOL (1/23/03 ~ ) [Concomitant]
  5. BENDROFLUMETHIAZIDE (2/14/04 ~ ) [Concomitant]

REACTIONS (2)
  - APHASIA [None]
  - GLIOBLASTOMA MULTIFORME [None]
